FAERS Safety Report 7406488-6 (Version None)
Quarter: 2011Q2

REPORT INFORMATION
  Report Type: 
  Country: None (occurrence: None)
  Receive Date: 20110411
  Receipt Date: 20110406
  Transmission Date: 20111010
  Serious: Yes (Other)
  Sender: FDA-Public Use
  Company Number: JP-SANOFI-AVENTIS-2011SA020527

PATIENT
  Age: 63 Year
  Sex: Male

DRUGS (10)
  1. TAXOTERE [Suspect]
     Indication: OESOPHAGEAL CARCINOMA
     Route: 041
     Dates: start: 20110311, end: 20110311
  2. FLUVOXAMINE MALEATE [Concomitant]
     Route: 048
  3. LANDSEN [Concomitant]
     Route: 048
  4. CORINAEL [Concomitant]
     Route: 048
  5. MACMET [Concomitant]
     Route: 048
  6. TAXOTERE [Suspect]
     Route: 041
     Dates: start: 20110401, end: 20110401
  7. PARIET [Concomitant]
     Route: 048
  8. ALL OTHER THERAPEUTIC PRODUCTS [Concomitant]
  9. OXYCONTIN [Concomitant]
     Route: 048
  10. MINOPHAGEN C [Concomitant]

REACTIONS (1)
  - RHABDOMYOLYSIS [None]
